FAERS Safety Report 8386512-7 (Version None)
Quarter: 2012Q2

REPORT INFORMATION
  Report Type: 
  Country: None (occurrence: None)
  Receive Date: 20120525
  Receipt Date: 20120516
  Transmission Date: 20120825
  Serious: Yes (Other)
  Sender: FDA-Public Use
  Company Number: GB-UCBSA-057472

PATIENT
  Age: 11 Year
  Sex: Female

DRUGS (1)
  1. XYZAL [Suspect]
     Dosage: LIQUID FORM

REACTIONS (3)
  - SWELLING FACE [None]
  - DYSPHAGIA [None]
  - LIP SWELLING [None]
